FAERS Safety Report 10528102 (Version 1)
Quarter: 2014Q4

REPORT INFORMATION
  Report Type: Report from Study
  Country: GB (occurrence: GB)
  Receive Date: 20141020
  Receipt Date: 20141020
  Transmission Date: 20150528
  Serious: Yes (Other)
  Sender: FDA-Public Use
  Company Number: GB-ABBVIE-14P-167-1297164-00

PATIENT
  Age: 27 Year
  Sex: Female
  Weight: 77.8 kg

DRUGS (2)
  1. HUMIRA [Suspect]
     Active Substance: ADALIMUMAB
     Indication: PSORIASIS
     Route: 058
     Dates: start: 20130219
  2. MISOPROSTOL. [Concomitant]
     Active Substance: MISOPROSTOL
     Indication: PRODUCT USED FOR UNKNOWN INDICATION
     Dates: start: 20120525

REACTIONS (1)
  - Abortion induced [Unknown]

NARRATIVE: CASE EVENT DATE: 20140410
